FAERS Safety Report 8261069 (Version 3)
Quarter: 2013Q4

REPORT INFORMATION
  Report Type: Spontaneous
  Country: JP (occurrence: JP)
  Receive Date: 20111123
  Receipt Date: 20131009
  Transmission Date: 20140711
  Serious: Yes (Hospitalization)
  Sender: FDA-Public Use
  Company Number: JP-SANOFI-AVENTIS-2011SA076126

PATIENT
  Age: 61 Year
  Sex: Male

DRUGS (2)
  1. CLOPIDOGREL BISULFATE [Suspect]
     Indication: CEREBRAL INFARCTION
     Route: 065
     Dates: start: 201101
  2. ASPIRIN [Suspect]
     Indication: CEREBRAL INFARCTION
     Route: 065
     Dates: start: 201101

REACTIONS (6)
  - Haemorrhagic cyst [Recovered/Resolved]
  - Parinaud syndrome [Recovered/Resolved]
  - Hydrocephalus [Recovered/Resolved]
  - Headache [Recovered/Resolved]
  - Depressed level of consciousness [Recovered/Resolved]
  - Diplopia [Recovered/Resolved]
